FAERS Safety Report 9410185 (Version 2)
Quarter: 2013Q3

REPORT INFORMATION
  Report Type: Spontaneous
  Country: NO (occurrence: NO)
  Receive Date: 20130719
  Receipt Date: 20130724
  Transmission Date: 20140515
  Serious: Yes (Death)
  Sender: FDA-Public Use
  Company Number: NO-B.I. PHARMACEUTICALS,INC./RIDGEFIELD-2013-SW-00367NO

PATIENT
  Sex: Male

DRUGS (12)
  1. PRADAXA [Suspect]
     Indication: ATRIAL FIBRILLATION
     Dosage: 300 MG
     Route: 048
     Dates: start: 2013
  2. AFIPRAN [Concomitant]
     Dosage: 4 TIMES DAILY AS NECESSARY
  3. ALBYL-E [Concomitant]
     Dosage: 75 MG
     Route: 048
  4. IMOVANE [Concomitant]
     Indication: INSOMNIA
     Dosage: 15 MG
     Route: 048
  5. TITRALAC [Concomitant]
     Dosage: ROUTE: OROPHARINGEAL, DAILY DOSE: 1-2 TABLETS AS NECESSARY
  6. DOLOCONTIN [Concomitant]
     Indication: PAIN
     Dosage: 40 MG
     Route: 048
  7. COLCHICINE [Concomitant]
     Indication: GOUTY ARTHRITIS
     Dosage: 1 MG
     Route: 048
  8. SELO-ZOK [Concomitant]
     Indication: HYPERTENSION
     Dosage: 50 MG
     Route: 048
  9. MORFIN [Concomitant]
     Indication: PAIN
     Dosage: AS NECESSARY
     Route: 048
  10. APOCILLIN [Concomitant]
     Indication: LUNG INFECTION
     Dosage: 3 G
     Route: 048
  11. SPIRIX [Concomitant]
     Indication: DIURETIC THERAPY
     Dosage: 25 MG
     Route: 048
  12. PANODIL [Concomitant]
     Indication: PAIN
     Dosage: 4 G
     Route: 048

REACTIONS (2)
  - Gastrointestinal haemorrhage [Fatal]
  - Death [Fatal]
